FAERS Safety Report 11648997 (Version 1)
Quarter: 2015Q4

REPORT INFORMATION
  Report Type: Spontaneous
  Country: US (occurrence: US)
  Receive Date: 20151021
  Receipt Date: 20151021
  Transmission Date: 20160304
  Serious: Yes (Hospitalization)
  Sender: FDA-Public Use
  Company Number: PHEH2015US020629

PATIENT
  Age: 7 Year
  Sex: Male

DRUGS (1)
  1. ILARIS [Suspect]
     Active Substance: CANAKINUMAB
     Indication: JUVENILE IDIOPATHIC ARTHRITIS
     Dosage: 150 MG, QMO
     Route: 058

REACTIONS (4)
  - Arthritis [Recovering/Resolving]
  - Serum ferritin increased [Recovering/Resolving]
  - Full blood count decreased [Recovering/Resolving]
  - Liver function test abnormal [Recovering/Resolving]
